FAERS Safety Report 5500996-0 (Version None)
Quarter: 2007Q4

REPORT INFORMATION
  Report Type: 
  Country: None (occurrence: None)
  Receive Date: 20071029
  Receipt Date: 20071019
  Transmission Date: 20080405
  Serious: Yes (Other)
  Sender: FDA-Public Use
  Company Number: PHEH2007US13878

PATIENT
  Age: 85 Year
  Sex: Female

DRUGS (1)
  1. LOTREL [Suspect]
     Indication: HYPERTENSION
     Dosage: 2.5/10 MG, QD
     Route: 048

REACTIONS (2)
  - COUGH [None]
  - HEART RATE IRREGULAR [None]
